FAERS Safety Report 10378778 (Version 1)
Quarter: 2014Q3

REPORT INFORMATION
  Report Type: Spontaneous
  Country: US (occurrence: None)
  Receive Date: 20140808
  Receipt Date: 20140808
  Transmission Date: 20150326
  Serious: Yes (Death, Hospitalization, Other)
  Sender: FDA-Public Use
  Company Number: COR_00050_2014

PATIENT
  Sex: Male

DRUGS (2)
  1. ETOPOSIDE. [Suspect]
     Active Substance: ETOPOSIDE
     Indication: ACTH-PRODUCING PITUITARY TUMOUR
     Dosage: 100 MG , MG/M2 [EVERY 3 WEEKS] JUL-2011 TO 2012  THERAPY DATE
     Dates: start: 201107, end: 2012
  2. CISPLATIN. [Suspect]
     Active Substance: CISPLATIN
     Indication: ACTH-PRODUCING PITUITARY TUMOUR
     Dates: start: 201107, end: 2011

REACTIONS (4)
  - Metastases to meninges [None]
  - Secondary adrenocortical insufficiency [None]
  - Adrenocortical insufficiency acute [None]
  - Convulsion [None]

NARRATIVE: CASE EVENT DATE: 201109
